FAERS Safety Report 13721011 (Version 1)
Quarter: 2017Q3

REPORT INFORMATION
  Report Type: Spontaneous
  Country: JP (occurrence: JP)
  Receive Date: 20170706
  Receipt Date: 20170706
  Transmission Date: 20171127
  Serious: Yes (Other)
  Sender: FDA-Public Use
  Company Number: JP-SHIRE-2014BAX024513

PATIENT
  Age: 16 Year
  Sex: Male
  Weight: 69 kg

DRUGS (7)
  1. ADVATE [Suspect]
     Active Substance: ANTIHEMOPHILIC FACTOR, HUMAN RECOMBINANT
     Dosage: 30000IU (INTERNATIONAL UNIT)1X A DAY
     Route: 042
     Dates: start: 20140512, end: 20140513
  2. ADVATE [Suspect]
     Active Substance: ANTIHEMOPHILIC FACTOR, HUMAN RECOMBINANT
     Indication: HAEMOSTASIS
     Dosage: 2000IU (INTERNATIONAL UNIT)2X A DAY
     Route: 042
     Dates: start: 20140507, end: 20140507
  3. ADVATE [Suspect]
     Active Substance: ANTIHEMOPHILIC FACTOR, HUMAN RECOMBINANT
     Dosage: 12000IU (INTERNATIONAL UNIT)2X A DAY
     Route: 042
     Dates: start: 20140508, end: 20140510
  4. ADVATE [Suspect]
     Active Substance: ANTIHEMOPHILIC FACTOR, HUMAN RECOMBINANT
     Dosage: 20000IU (INTERNATIONAL UNIT)2X A DAY
     Route: 042
     Dates: start: 20140510, end: 20140512
  5. BAXJECT II [Suspect]
     Active Substance: DEVICE
     Indication: HAEMOSTASIS
  6. ADVATE [Suspect]
     Active Substance: ANTIHEMOPHILIC FACTOR, HUMAN RECOMBINANT
     Indication: HAEMARTHROSIS
     Dosage: 6000IU (INTERNATIONAL UNIT)1X A DAY
     Route: 042
     Dates: start: 20140507, end: 20140508
  7. BAXJECT II [Suspect]
     Active Substance: DEVICE
     Indication: HAEMARTHROSIS

REACTIONS (3)
  - Haemorrhage [Recovered/Resolved]
  - Compartment syndrome [Recovered/Resolved]
  - Factor VIII inhibition [Recovered/Resolved]

NARRATIVE: CASE EVENT DATE: 201405
